FAERS Safety Report 11686205 (Version 2)
Quarter: 2015Q4

REPORT INFORMATION
  Report Type: Report from Study
  Country: CA (occurrence: CA)
  Receive Date: 20151030
  Receipt Date: 20151110
  Transmission Date: 20160304
  Serious: Yes (Hospitalization, Other)
  Sender: FDA-Public Use
  Company Number: CA-TOLMAR, INC.-2015CA009580

PATIENT

DRUGS (1)
  1. ELIGARD [Suspect]
     Active Substance: LEUPROLIDE ACETATE
     Indication: PROSTATE CANCER
     Dosage: 4 MONTH INJECTION
     Route: 065
     Dates: start: 20100819, end: 20150715

REACTIONS (3)
  - Prostate cancer [Unknown]
  - Tremor [Unknown]
  - Infection [Unknown]

NARRATIVE: CASE EVENT DATE: 20150920
